FAERS Safety Report 7042834-3 (Version None)
Quarter: 2010Q4

REPORT INFORMATION
  Report Type: 
  Country: None (occurrence: None)
  Receive Date: 20101013
  Receipt Date: 20100427
  Transmission Date: 20110411
  Serious: No
  Sender: FDA-Public Use
  Company Number: US-ASTRAZENECA-2010SE18940

PATIENT
  Age: 12915 Day
  Sex: Female
  Weight: 79.4 kg

DRUGS (2)
  1. SYMBICORT [Suspect]
     Dosage: 160/4.5, 2 PUFFS, BID
     Route: 055
     Dates: start: 20100301
  2. SINGULAIR [Concomitant]

REACTIONS (1)
  - ALOPECIA [None]
